FAERS Safety Report 6662178-9 (Version None)
Quarter: 2010Q1

REPORT INFORMATION
  Report Type: 
  Country: None (occurrence: None)
  Receive Date: 20100331
  Receipt Date: 20100319
  Transmission Date: 20100710
  Serious: No
  Sender: FDA-Public Use
  Company Number: US-B.I. PHARMACEUTICALS,INC./RIDGEFIELD-2010-BP-03252BP

PATIENT
  Sex: Female

DRUGS (5)
  1. SPIRIVA [Suspect]
     Indication: CHRONIC OBSTRUCTIVE PULMONARY DISEASE
     Dosage: 18 MCG
     Route: 055
     Dates: start: 20070101, end: 20090101
  2. FORADIL [Concomitant]
     Indication: CHRONIC OBSTRUCTIVE PULMONARY DISEASE
     Route: 055
     Dates: start: 20060101
  3. BENICAR [Concomitant]
     Indication: HYPERTENSION
     Dates: start: 20050101
  4. TOPROL-XL [Concomitant]
     Indication: HYPERTENSION
     Dates: start: 20050101
  5. DIGOXIN [Concomitant]
     Indication: CORONARY ARTERY DISEASE
     Dates: start: 20000101

REACTIONS (1)
  - DRY MOUTH [None]
